FAERS Safety Report 18725905 (Version 4)
Quarter: 2021Q3

REPORT INFORMATION
  Report Type: Spontaneous
  Country: JP (occurrence: JP)
  Receive Date: 20210111
  Receipt Date: 20210720
  Transmission Date: 20211014
  Serious: Yes (Other)
  Sender: FDA-Public Use
  Company Number: JP-ABBVIE-21K-087-3720467-00

PATIENT
  Age: 37 Year
  Sex: Female
  Weight: 52.4 kg

DRUGS (9)
  1. HUMIRA [Suspect]
     Active Substance: ADALIMUMAB
     Indication: UVEITIS
     Route: 058
     Dates: start: 20180406, end: 20190531
  2. CICLOSPORIN [Concomitant]
     Active Substance: CYCLOSPORINE
     Indication: UVEITIS
     Route: 048
  3. HUMIRA [Suspect]
     Active Substance: ADALIMUMAB
     Route: 058
     Dates: start: 20200122
  4. BETAMETHASONE SODIUM PHOSPHATE [Concomitant]
     Active Substance: BETAMETHASONE SODIUM PHOSPHATE
     Indication: UVEITIS
     Dosage: 2 TO 4 BOTH EYES
     Route: 047
     Dates: start: 20150116
  5. HUMIRA [Suspect]
     Active Substance: ADALIMUMAB
     Indication: BEHCET^S SYNDROME
     Dosage: INCREASED
     Route: 058
     Dates: start: 20200103, end: 20200103
  6. CICLOSPORIN [Concomitant]
     Active Substance: CYCLOSPORINE
     Indication: BEHCET^S SYNDROME
     Dosage: DECREASED
     Route: 048
  7. CICLOSPORIN [Concomitant]
     Active Substance: CYCLOSPORINE
     Route: 048
  8. HUMIRA [Suspect]
     Active Substance: ADALIMUMAB
     Route: 058
     Dates: start: 20200115, end: 20200115
  9. PREDNISOLONE. [Concomitant]
     Active Substance: PREDNISOLONE
     Indication: BEHCET^S SYNDROME
     Route: 048
     Dates: start: 20190619

REACTIONS (8)
  - Retinal detachment [Recovering/Resolving]
  - Tissue infiltration [Recovering/Resolving]
  - Aphthous ulcer [Recovering/Resolving]
  - Tissue infiltration [Recovered/Resolved]
  - Genital ulceration [Recovering/Resolving]
  - Retinal haemorrhage [Recovering/Resolving]
  - Maternal exposure during pregnancy [Unknown]
  - Live birth [Unknown]

NARRATIVE: CASE EVENT DATE: 20190619
